FAERS Safety Report 7772137-0 (Version None)
Quarter: 2011Q3

REPORT INFORMATION
  Report Type: 
  Country: None (occurrence: None)
  Receive Date: 20110922
  Receipt Date: 20110113
  Transmission Date: 20111222
  Serious: No
  Sender: FDA-Public Use
  Company Number: US-ASTRAZENECA-2011SE02327

PATIENT
  Age: 35 Year
  Sex: Female
  Weight: 99.8 kg

DRUGS (2)
  1. 12 OTHER MEDICATIONS [Concomitant]
  2. SEROQUEL [Suspect]
     Indication: BIPOLAR DISORDER
     Route: 048
     Dates: start: 20060101

REACTIONS (1)
  - DEMENTIA [None]
